FAERS Safety Report 14526616 (Version 1)
Quarter: 2018Q1

REPORT INFORMATION
  Report Type: Spontaneous
  Country: RU (occurrence: RU)
  Receive Date: 20180213
  Receipt Date: 20180213
  Transmission Date: 20180509
  Serious: Yes (Hospitalization)
  Sender: FDA-Public Use
  Company Number: RU-ASTRAZENECA-2018SE16959

PATIENT
  Age: 40 Year
  Sex: Male
  Weight: 90 kg

DRUGS (5)
  1. ATORIS [Concomitant]
     Active Substance: ATORVASTATIN CALCIUM
  2. ASPIRIN CARDIO [Concomitant]
     Active Substance: ASPIRIN
  3. ENALAPRIL [Concomitant]
     Active Substance: ENALAPRIL
  4. CONCOR [Concomitant]
     Active Substance: BISOPROLOL FUMARATE
  5. BRILINTA [Suspect]
     Active Substance: TICAGRELOR
     Indication: MYOCARDIAL INFARCTION
     Route: 048
     Dates: start: 201702

REACTIONS (1)
  - Myocardial infarction [Recovered/Resolved]

NARRATIVE: CASE EVENT DATE: 201712
